FAERS Safety Report 24836793 (Version 1)
Quarter: 2025Q1

REPORT INFORMATION
  Report Type: Spontaneous
  Country: US (occurrence: US)
  Receive Date: 20250113
  Receipt Date: 20250113
  Transmission Date: 20250409
  Serious: Yes (Other)
  Sender: SANOFI AVENTIS
  Company Number: US-SA-2025SA009211

PATIENT
  Sex: Male

DRUGS (4)
  1. DUPIXENT [Suspect]
     Active Substance: DUPILUMAB
     Indication: Asthma
     Route: 065
  2. DUPIXENT [Suspect]
     Active Substance: DUPILUMAB
     Indication: Nasal polyps
  3. PREDNISONE [Concomitant]
     Active Substance: PREDNISONE
  4. NUCALA [Concomitant]
     Active Substance: MEPOLIZUMAB
     Dosage: 100 MILLIGRAMS Q4W

REACTIONS (5)
  - Myocarditis [Unknown]
  - Cardiac failure congestive [Unknown]
  - Symptom recurrence [Unknown]
  - Eosinophil count increased [Unknown]
  - Rash [Unknown]
